FAERS Safety Report 10195818 (Version 1)
Quarter: 2014Q2

REPORT INFORMATION
  Report Type: Spontaneous
  Country: US (occurrence: None)
  Receive Date: 20140521
  Receipt Date: 20140521
  Transmission Date: 20141212
  Serious: Yes (Hospitalization, Other)
  Sender: FDA-Public Use
  Company Number: 2014-US-004525

PATIENT
  Age: 61 Year
  Sex: Female
  Weight: 53.5 kg

DRUGS (3)
  1. XYREM [Suspect]
     Indication: NARCOLEPSY
     Route: 048
     Dates: start: 200408, end: 2004
  2. XYREM [Suspect]
     Indication: CATAPLEXY
     Route: 048
     Dates: start: 200408, end: 2004
  3. ALL OTHER THERAPEUTIC PRODUCTS (ALL OTHER THERAPEUTIC PRODUCTS) [Concomitant]

REACTIONS (9)
  - Rehabilitation therapy [None]
  - Hip arthroplasty [None]
  - Knee arthroplasty [None]
  - Pulmonary embolism [None]
  - Joint dislocation [None]
  - Limb asymmetry [None]
  - Gait disturbance [None]
  - Fall [None]
  - Pain [None]
